FAERS Safety Report 4318981-3 (Version None)
Quarter: 2004Q1

REPORT INFORMATION
  Report Type: 
  Country: None (occurrence: None)
  Receive Date: 20040316
  Receipt Date: 20040304
  Transmission Date: 20041129
  Serious: Yes (Hospitalization, Other)
  Sender: FDA-Public Use
  Company Number: JP-JNJFOC-20040301721

PATIENT
  Age: 61 Year
  Sex: Male

DRUGS (4)
  1. RISPERDAL [Suspect]
     Indication: SCHIZOPHRENIA
     Dosage: SEE IMAGE
     Route: 048
     Dates: start: 20031101, end: 20031128
  2. RISPERDAL [Suspect]
     Indication: SCHIZOPHRENIA
     Dosage: SEE IMAGE
     Route: 048
     Dates: start: 20031129, end: 20040207
  3. FLUNITRAZEPAM (FLUNITRAZEPAM) [Concomitant]
  4. THIORIDAZINE HCL [Concomitant]

REACTIONS (1)
  - PANCYTOPENIA [None]
